FAERS Safety Report 17492396 (Version 2)
Quarter: 2021Q2

REPORT INFORMATION
  Report Type: Spontaneous
  Country: CA (occurrence: CA)
  Receive Date: 20200304
  Receipt Date: 20210528
  Transmission Date: 20210716
  Serious: Yes (Hospitalization, Other)
  Sender: FDA-Public Use
  Company Number: CA-ORION CORPORATION ORION PHARMA-TREX2020-1151

PATIENT
  Age: 3 Year
  Sex: Male

DRUGS (1)
  1. METHOTREXATE (TRADE NAME UNKNOWN) [Suspect]
     Active Substance: METHOTREXATE
     Indication: B PRECURSOR TYPE ACUTE LEUKAEMIA
     Dosage: CAPIZZI REGIMEN: REGIMEN STARTING WITH 100MG/M2, INCREASING DOSE BY 50MG
     Route: 065

REACTIONS (2)
  - Gastric mucosal hypertrophy [Unknown]
  - Cytomegalovirus infection [Unknown]
